FAERS Safety Report 4412286-8 (Version None)
Quarter: 2004Q2

REPORT INFORMATION
  Report Type: 
  Country: None (occurrence: None)
  Receive Date: 20040630
  Receipt Date: 20040325
  Transmission Date: 20050107
  Serious: No
  Sender: FDA-Public Use
  Company Number: 04P-163-0253754-00

PATIENT
  Age: 53 Year
  Sex: Female
  Weight: 63.5036 kg

DRUGS (6)
  1. HUMIRA [Suspect]
     Indication: RHEUMATOID ARTHRITIS
     Dosage: 40 MG, 1 IN 2 WKI, SUBCUTANEOUS
     Route: 058
     Dates: start: 20030301
  2. METHOTREXATE [Concomitant]
  3. FOLIC ACID [Concomitant]
  4. IBUPROFEN [Concomitant]
  5. DIAZEPAM [Concomitant]
  6. PREDNISONE [Concomitant]

REACTIONS (3)
  - INJECTION SITE SWELLING [None]
  - JOINT SWELLING [None]
  - SKIN DISORDER [None]
